FAERS Safety Report 4478791-3 (Version None)
Quarter: 2004Q4

REPORT INFORMATION
  Report Type: 
  Country: None (occurrence: None)
  Receive Date: 20040923
  Receipt Date: 20040611
  Transmission Date: 20050328
  Serious: No
  Sender: FDA-Public Use
  Company Number: USA040568825

PATIENT
  Age: 81 Year
  Sex: Female
  Weight: 50 kg

DRUGS (2)
  1. FORTEO [Suspect]
     Indication: BONE DENSITY DECREASED
     Dosage: 20 UG DAY
     Dates: start: 20040525
  2. LIPITOR [Concomitant]

REACTIONS (4)
  - BRONCHITIS [None]
  - COUGH [None]
  - INJECTION SITE ERYTHEMA [None]
  - SINUS CONGESTION [None]
